FAERS Safety Report 5696575-5 (Version None)
Quarter: 2008Q2

REPORT INFORMATION
  Report Type: 
  Country: None (occurrence: None)
  Receive Date: 20080404
  Receipt Date: 20080404
  Transmission Date: 20081010
  Serious: Yes (Hospitalization)
  Sender: FDA-Public Use
  Company Number: None

PATIENT
  Age: 51 Year
  Sex: Male
  Weight: 95.45 kg

DRUGS (1)
  1. RIBAVIRIN [Suspect]
     Dosage: 600MG BID PO
     Route: 048
     Dates: start: 20071104, end: 20071126

REACTIONS (4)
  - DYSPNOEA [None]
  - FATIGUE [None]
  - HAEMOLYTIC ANAEMIA [None]
  - TACHYCARDIA [None]
